FAERS Safety Report 19037929 (Version 1)
Quarter: 2021Q1

REPORT INFORMATION
  Report Type: Report from Study
  Country: CA (occurrence: CA)
  Receive Date: 20210322
  Receipt Date: 20210322
  Transmission Date: 20210420
  Serious: Yes (Hospitalization)
  Sender: FDA-Public Use
  Company Number: CA-MYLANLABS-2021M1016354

PATIENT
  Age: 59 Year
  Sex: Female

DRUGS (6)
  1. WARFARIN [Interacting]
     Active Substance: WARFARIN
     Indication: ATRIAL FIBRILLATION
     Dosage: UNK UNK, QW(INCREASED UP TO 80.5 MG/WEEK BY WEEK 4)
     Route: 048
  2. WARFARIN [Interacting]
     Active Substance: WARFARIN
     Indication: PULMONARY EMBOLISM
     Dosage: WARFARIN WAS GRADUALLY DECREASED
     Route: 048
  3. LEVOFLOXACIN. [Interacting]
     Active Substance: LEVOFLOXACIN
     Indication: DEVICE RELATED INFECTION
     Dosage: 750 MILLIGRAM, QD
     Route: 065
  4. WARFARIN [Suspect]
     Active Substance: WARFARIN
     Indication: DEEP VEIN THROMBOSIS
     Dosage: 21 MILLIGRAM, QW
     Route: 048
  5. CIPROFLOXACIN. [Interacting]
     Active Substance: CIPROFLOXACIN
     Indication: DEVICE RELATED INFECTION
     Dosage: 500 MILLIGRAM, BID
     Route: 065
  6. RIFAMPIN. [Interacting]
     Active Substance: RIFAMPIN
     Indication: DEVICE RELATED INFECTION
     Dosage: 600 MILLIGRAM, QD
     Route: 048

REACTIONS (3)
  - Anticoagulation drug level decreased [Recovered/Resolved]
  - Labelled drug-drug interaction medication error [Recovered/Resolved]
  - Drug interaction [Unknown]
